FAERS Safety Report 7020054-6 (Version None)
Quarter: 2010Q3

REPORT INFORMATION
  Report Type: 
  Country: None (occurrence: None)
  Receive Date: 20100929
  Receipt Date: 20100917
  Transmission Date: 20110219
  Serious: Yes (Life-Threatening)
  Sender: FDA-Public Use
  Company Number: JP-WYE-H17619310

PATIENT
  Age: 62 Year
  Sex: Female

DRUGS (6)
  1. ZOSYN [Suspect]
     Indication: DIFFUSE PANBRONCHIOLITIS
     Route: 041
     Dates: start: 20100831, end: 20100912
  2. ZOSYN [Suspect]
     Route: 041
     Dates: start: 20100913, end: 20100914
  3. LOXONIN [Concomitant]
     Indication: PYREXIA
     Dosage: 120 - 180 MG/DAY
     Route: 048
     Dates: start: 20100727, end: 20100914
  4. ADVAIR DISKUS 100/50 [Concomitant]
     Indication: ASTHMA
     Route: 055
     Dates: start: 20080801, end: 20100914
  5. CLARITHROMYCIN [Concomitant]
     Indication: DIFFUSE PANBRONCHIOLITIS
     Route: 048
     Dates: start: 20050101, end: 20100914
  6. MUCODYNE [Concomitant]
     Indication: DIFFUSE PANBRONCHIOLITIS
     Route: 048
     Dates: start: 20050101, end: 20100914

REACTIONS (7)
  - AGRANULOCYTOSIS [None]
  - ALANINE AMINOTRANSFERASE INCREASED [None]
  - ASPARTATE AMINOTRANSFERASE INCREASED [None]
  - DISEASE PROGRESSION [None]
  - DISSEMINATED INTRAVASCULAR COAGULATION [None]
  - GAMMA-GLUTAMYLTRANSFERASE INCREASED [None]
  - HEPATIC FUNCTION ABNORMAL [None]
